FAERS Safety Report 6314806-5 (Version None)
Quarter: 2009Q3

REPORT INFORMATION
  Report Type: 
  Country: None (occurrence: None)
  Receive Date: 20090817
  Receipt Date: 20090817
  Transmission Date: 20100115
  Serious: Yes (Disabling)
  Sender: FDA-Public Use
  Company Number: None

PATIENT
  Age: 37 Year
  Sex: Female
  Weight: 72.5755 kg

DRUGS (1)
  1. VIMPAT [Suspect]
     Indication: MIGRAINE PROPHYLAXIS
     Dosage: 100MG  2X DAY PO
     Route: 048
     Dates: start: 20090715, end: 20090814

REACTIONS (3)
  - DRY EYE [None]
  - LACRIMATION DECREASED [None]
  - OCULAR HYPERAEMIA [None]
